FAERS Safety Report 14983284 (Version 1)
Quarter: 2018Q2

REPORT INFORMATION
  Report Type: Spontaneous
  Country: US (occurrence: US)
  Receive Date: 20180517
  Receipt Date: 20180517
  Transmission Date: 20180711
  Serious: Yes (Disabling)
  Sender: FDA-Public Use
  Company Number: None

PATIENT
  Age: 66 Year
  Sex: Female
  Weight: 112.5 kg

DRUGS (13)
  1. ELIQUIS [Suspect]
     Active Substance: APIXABAN
     Indication: FACTOR V LEIDEN MUTATION
     Dosage: ?          QUANTITY:2 TABLET(S);?
     Route: 048
     Dates: start: 20170315, end: 20180403
  2. BUPROPION HCI (XL) [Concomitant]
  3. LISINOPRIL-HYDROCHLOROTHIAZIDE [Concomitant]
     Active Substance: HYDROCHLOROTHIAZIDE\LISINOPRIL
  4. HYDRALAZINE HCI [Concomitant]
  5. LOVASTATIN. [Concomitant]
     Active Substance: LOVASTATIN
  6. VITAMIN B12 [Concomitant]
     Active Substance: CYANOCOBALAMIN
  7. VALIUM [Concomitant]
     Active Substance: DIAZEPAM
  8. AMLODIPINE BESYLATE. [Concomitant]
     Active Substance: AMLODIPINE BESYLATE
  9. ADULT LOW DOSE ASPIRIN [Concomitant]
     Active Substance: ASPIRIN
  10. OXYBUTYNIN CHLORIDE. [Concomitant]
     Active Substance: OXYBUTYNIN CHLORIDE
  11. ATENOLOL. [Concomitant]
     Active Substance: ATENOLOL
  12. POTASSIUM CLER ME20 [Concomitant]
  13. (NORVASC) CITALOPRAM HYDROBROMIDE [Concomitant]

REACTIONS (3)
  - Dyspnoea [None]
  - Muscular weakness [None]
  - Fatigue [None]

NARRATIVE: CASE EVENT DATE: 20170601
